FAERS Safety Report 8196460-3 (Version None)
Quarter: 2012Q1

REPORT INFORMATION
  Report Type: 
  Country: None (occurrence: None)
  Receive Date: 20120309
  Receipt Date: 20120301
  Transmission Date: 20120608
  Serious: Yes (Hospitalization, Other)
  Sender: FDA-Public Use
  Company Number: US-BAYER-2011-062576

PATIENT
  Age: 28 Year
  Sex: Female
  Weight: 79.365 kg

DRUGS (7)
  1. PROVENTIL-HFA [Concomitant]
     Indication: ASTHMA
     Dosage: UNK
     Dates: start: 20091104
  2. YASMIN [Suspect]
     Indication: CONTRACEPTION
     Dosage: UNK
     Route: 048
     Dates: start: 20010101, end: 20070101
  3. AZITHROMYCIN [Concomitant]
  4. DROSPIRENONE AND ETHINYL ESTRADIOL [Suspect]
     Indication: CONTRACEPTION
     Dosage: UNK
     Route: 048
     Dates: start: 20090818, end: 20091201
  5. IBUPROFEN [Concomitant]
     Dosage: 800 MG, TID
     Dates: start: 20101025
  6. CLARITHROMYCIN [Concomitant]
     Dosage: UNK
     Dates: start: 20091104
  7. DIETARY SUPPLEMENTS [Concomitant]
     Dosage: UNK
     Dates: start: 20100105

REACTIONS (6)
  - INJURY [None]
  - PAIN [None]
  - EMOTIONAL DISTRESS [None]
  - CHOLELITHIASIS [None]
  - GALLBLADDER DISORDER [None]
  - CHOLECYSTITIS CHRONIC [None]
